FAERS Safety Report 23218395 (Version 1)
Quarter: 2023Q4

REPORT INFORMATION
  Report Type: Report from Study
  Country: GB (occurrence: None)
  Receive Date: 20231122
  Receipt Date: 20231122
  Transmission Date: 20240110
  Serious: Yes (Other)
  Sender: FDA-Public Use
  Company Number: 2023A220545

PATIENT

DRUGS (1)
  1. DURVALUMAB [Suspect]
     Active Substance: DURVALUMAB
     Indication: Gallbladder adenocarcinoma
     Route: 042
     Dates: start: 20230627

REACTIONS (3)
  - Biliary obstruction [Unknown]
  - Bile duct stenosis [Unknown]
  - Platelet count decreased [Unknown]
